FAERS Safety Report 16995111 (Version 2)
Quarter: 2019Q4

REPORT INFORMATION
  Report Type: Spontaneous
  Country: US (occurrence: US)
  Receive Date: 20191105
  Receipt Date: 20191219
  Transmission Date: 20200122
  Serious: No
  Sender: FDA-Public Use
  Company Number: US-PFIZER INC-2019379447

PATIENT
  Age: 2 Year
  Sex: Female

DRUGS (5)
  1. GENOTROPIN [Suspect]
     Active Substance: SOMATROPIN
     Indication: PATENT DUCTUS ARTERIOSUS
  2. GENOTROPIN [Suspect]
     Active Substance: SOMATROPIN
     Indication: BICUSPID AORTIC VALVE
  3. GENOTROPIN [Suspect]
     Active Substance: SOMATROPIN
     Indication: AORTA HYPOPLASIA
  4. GENOTROPIN [Suspect]
     Active Substance: SOMATROPIN
     Indication: COARCTATION OF THE AORTA
     Dosage: 0.6 MG, DAILY
  5. GENOTROPIN [Suspect]
     Active Substance: SOMATROPIN
     Indication: LEFT VENTRICULAR HYPERTROPHY

REACTIONS (4)
  - Product dose omission [Unknown]
  - Product use in unapproved indication [Unknown]
  - Device leakage [Unknown]
  - Off label use [Unknown]

NARRATIVE: CASE EVENT DATE: 20191011
